FAERS Safety Report 24161276 (Version 1)
Quarter: 2024Q3

REPORT INFORMATION
  Report Type: Spontaneous
  Country: ZA (occurrence: ZA)
  Receive Date: 20240801
  Receipt Date: 20240801
  Transmission Date: 20241016
  Serious: Yes (Death, Other)
  Sender: RANBAXY
  Company Number: ZA-SUN PHARMACEUTICAL INDUSTRIES LTD-2024RR-460159

PATIENT
  Age: 48 Year
  Sex: Male

DRUGS (2)
  1. CIPROFLOXACIN [Suspect]
     Active Substance: CIPROFLOXACIN
     Indication: Gastroenteritis
     Dosage: 500 MILLIGRAM, BID
     Route: 065
  2. LOPERAMIDE [Suspect]
     Active Substance: LOPERAMIDE
     Indication: Gastroenteritis
     Dosage: 2 MILLIGRAM
     Route: 048

REACTIONS (2)
  - Condition aggravated [Fatal]
  - Drug ineffective [Unknown]
